FAERS Safety Report 24757363 (Version 2)
Quarter: 2025Q1

REPORT INFORMATION
  Report Type: Spontaneous
  Country: AT (occurrence: AT)
  Receive Date: 20241220
  Receipt Date: 20250102
  Transmission Date: 20250408
  Serious: Yes (Hospitalization)
  Sender: GLAXOSMITHKLINE
  Company Number: AT-GSK-AT2024GSK158455

PATIENT

DRUGS (8)
  1. LAMOTRIGINE [Suspect]
     Active Substance: LAMOTRIGINE
     Indication: Temporal lobe epilepsy
     Dates: start: 202206
  2. LAMOTRIGINE [Suspect]
     Active Substance: LAMOTRIGINE
     Dates: start: 202210
  3. LAMOTRIGINE [Suspect]
     Active Substance: LAMOTRIGINE
     Dosage: 200 MG, BID
  4. LEVETIRACETAM [Concomitant]
     Active Substance: LEVETIRACETAM
     Indication: Seizure
     Dates: start: 201402
  5. LEVETIRACETAM [Concomitant]
     Active Substance: LEVETIRACETAM
     Dates: start: 202007
  6. LEVETIRACETAM [Concomitant]
     Active Substance: LEVETIRACETAM
     Dates: start: 202206
  7. BRIVARACETAM [Concomitant]
     Active Substance: BRIVARACETAM
     Indication: Temporal lobe epilepsy
     Dates: start: 202210
  8. BRIVARACETAM [Concomitant]
     Active Substance: BRIVARACETAM
     Dosage: 100 MG, BID

REACTIONS (1)
  - Parkinsonism [Unknown]
